FAERS Safety Report 7458576-6 (Version None)
Quarter: 2011Q2

REPORT INFORMATION
  Report Type: 
  Country: None (occurrence: None)
  Receive Date: 20110504
  Receipt Date: 20110429
  Transmission Date: 20111010
  Serious: Yes (Death, Hospitalization)
  Sender: FDA-Public Use
  Company Number: VE-MEDIMMUNE-MEDI-0012907

PATIENT
  Age: 5 Month
  Sex: Female
  Weight: 4 kg

DRUGS (2)
  1. SYNAGIS [Suspect]
     Route: 058
     Dates: start: 20110112, end: 20110112
  2. SYNAGIS [Suspect]
     Route: 058
     Dates: start: 20110211, end: 20110211

REACTIONS (3)
  - SEPTIC SHOCK [None]
  - NOSOCOMIAL INFECTION [None]
  - INFECTION [None]
